FAERS Safety Report 7898080-4 (Version None)
Quarter: 2011Q4

REPORT INFORMATION
  Report Type: 
  Country: None (occurrence: None)
  Receive Date: 20111107
  Receipt Date: 20111103
  Transmission Date: 20120403
  Serious: Yes (Other)
  Sender: FDA-Public Use
  Company Number: TW-PFIZER INC-2011160366

PATIENT
  Age: 31 Year
  Sex: Female

DRUGS (5)
  1. GEODON [Suspect]
     Dosage: 40 MG, 1X/DAY
     Route: 048
     Dates: start: 20110101
  2. ZOLPIDEM [Concomitant]
     Indication: INSOMNIA
     Dosage: 0.5 DF, AS NEEDED
     Route: 048
  3. PROZAC [Concomitant]
     Indication: BULIMIA NERVOSA
     Dosage: 1 DF, 1X/DAY
     Route: 048
  4. ATIVAN [Concomitant]
     Indication: INSOMNIA
     Dosage: 1 DF, 1X/DAY
     Route: 048
  5. GEODON [Suspect]
     Indication: SCHIZOPHRENIA
     Dosage: UNK
     Route: 048
     Dates: start: 20100101, end: 20110601

REACTIONS (5)
  - GAIT DISTURBANCE [None]
  - MUSCULAR WEAKNESS [None]
  - DYSKINESIA [None]
  - TREMOR [None]
  - MUSCLE TWITCHING [None]
